FAERS Safety Report 6518834-6 (Version None)
Quarter: 2009Q4

REPORT INFORMATION
  Report Type: 
  Country: None (occurrence: None)
  Receive Date: 20091228
  Receipt Date: 20091218
  Transmission Date: 20100525
  Serious: Yes (Other)
  Sender: FDA-Public Use
  Company Number: US-JNJFOC-20091206450

PATIENT
  Sex: Female
  Weight: 136.08 kg

DRUGS (2)
  1. DURAGESIC-100 [Suspect]
     Indication: FIBROMYALGIA
     Route: 062
  2. DURAGESIC-100 [Suspect]
     Route: 062

REACTIONS (4)
  - DRUG EFFECT DECREASED [None]
  - DRUG SCREEN NEGATIVE [None]
  - NEUROPATHY PERIPHERAL [None]
  - THERAPEUTIC RESPONSE DECREASED [None]
